FAERS Safety Report 15220202 (Version 1)
Quarter: 2018Q3

REPORT INFORMATION
  Report Type: Spontaneous
  Country: US (occurrence: US)
  Receive Date: 20180703
  Receipt Date: 20180703
  Transmission Date: 20181010
  Serious: Yes (Hospitalization)
  Sender: FDA-Public Use
  Company Number: None

PATIENT
  Age: 72 Year
  Sex: Female

DRUGS (9)
  1. ESCITALOPRAM [Concomitant]
     Active Substance: ESCITALOPRAM OXALATE
  2. OMPRAZOLE [Concomitant]
     Active Substance: OMEPRAZOLE
  3. PROMACTA [Suspect]
     Active Substance: ELTROMBOPAG OLAMINE
     Route: 048
     Dates: start: 20171110
  4. BACLOFEN. [Concomitant]
     Active Substance: BACLOFEN
  5. BUPORPN [Concomitant]
  6. ROSUVASTATIN. [Concomitant]
     Active Substance: ROSUVASTATIN
  7. GABAPENTIN. [Concomitant]
     Active Substance: GABAPENTIN
  8. DULOXETINE. [Concomitant]
     Active Substance: DULOXETINE
  9. SPIRONOLACT [Concomitant]
     Active Substance: SPIRONOLACTONE

REACTIONS (2)
  - Haemoptysis [None]
  - Oesophageal disorder [None]

NARRATIVE: CASE EVENT DATE: 20180612
